FAERS Safety Report 25924663 (Version 1)
Quarter: 2025Q4

REPORT INFORMATION
  Report Type: Spontaneous
  Country: ET (occurrence: ET)
  Receive Date: 20251015
  Receipt Date: 20251015
  Transmission Date: 20260117
  Serious: Yes (Other)
  Sender: APOTEX
  Company Number: ET-APOTEX-2025AP031107

PATIENT
  Age: 56 Year
  Sex: Female

DRUGS (6)
  1. ANASTROZOLE [Suspect]
     Active Substance: ANASTROZOLE
     Indication: Hormone receptor positive breast cancer
     Dosage: 1 MILLIGRAM, QD
     Route: 048
  2. ANASTROZOLE [Suspect]
     Active Substance: ANASTROZOLE
     Indication: Postmenopause
  3. ADRIAMYCIN [Concomitant]
     Active Substance: DOXORUBICIN HYDROCHLORIDE
     Indication: Breast cancer metastatic
     Dosage: UNK (8 CYCLES)
     Route: 065
  4. CYCLOPHOSPHAMIDE [Concomitant]
     Active Substance: CYCLOPHOSPHAMIDE
     Indication: Breast cancer metastatic
     Dosage: UNK (8 CYCLES)
     Route: 065
  5. TAXOL [Concomitant]
     Active Substance: PACLITAXEL
     Indication: Breast cancer metastatic
     Dosage: UNK (8 CYCLES)
     Route: 065
  6. ZOLEDRONIC ACID [Concomitant]
     Active Substance: ZOLEDRONIC ACID
     Indication: Metastases to bone
     Dosage: 4 MILLIGRAM (EVERY 3-4 WEEKS)
     Route: 042

REACTIONS (1)
  - Rectal adenocarcinoma [Unknown]
